FAERS Safety Report 16755719 (Version 4)
Quarter: 2020Q1

REPORT INFORMATION
  Report Type: Report from Study
  Country: CA (occurrence: CA)
  Receive Date: 20190829
  Receipt Date: 20200213
  Transmission Date: 20200409
  Serious: Yes (Death, Hospitalization, Other)
  Sender: FDA-Public Use
  Company Number: CA-JNJFOC-20190829013

PATIENT
  Age: 72 Year
  Sex: Female
  Weight: 74.84 kg

DRUGS (1)
  1. REMICADE [Suspect]
     Active Substance: INFLIXIMAB
     Indication: PYODERMA GANGRENOSUM
     Dosage: ON 22-AUG-2019, PATIENT RECEIVED ONE DOSE OF REMICADE INFUSION
     Route: 042
     Dates: start: 20190722, end: 20190925

REACTIONS (6)
  - Infection [Unknown]
  - Off label use [Unknown]
  - Vascular access complication [Not Recovered/Not Resolved]
  - Death [Fatal]
  - Product use in unapproved indication [Unknown]
  - Pyoderma gangrenosum [Unknown]

NARRATIVE: CASE EVENT DATE: 2019
